FAERS Safety Report 24994775 (Version 1)
Quarter: 2025Q1

REPORT INFORMATION
  Report Type: Spontaneous
  Country: ES (occurrence: ES)
  Receive Date: 20250221
  Receipt Date: 20250221
  Transmission Date: 20250409
  Serious: Yes (Hospitalization, Disabling)
  Sender: RANBAXY
  Company Number: ES-SUN PHARMACEUTICAL INDUSTRIES LTD-2025RR-495722

PATIENT
  Age: 74 Year
  Sex: Female

DRUGS (3)
  1. ATORVASTATIN [Suspect]
     Active Substance: ATORVASTATIN
     Indication: Hypercholesterolaemia
     Dosage: 10 MG
     Route: 048
     Dates: start: 20200703, end: 20210519
  2. ATORVASTATIN [Suspect]
     Active Substance: ATORVASTATIN
     Dosage: 20 MILLIGRAM, QD
     Route: 048
     Dates: start: 20160419, end: 20170530
  3. SIMVASTATIN [Concomitant]
     Active Substance: SIMVASTATIN
     Indication: Hypercholesterolaemia
     Dosage: 10 MILLIGRAM, QD
     Route: 048
     Dates: start: 20150220, end: 20160419

REACTIONS (2)
  - Necrotising myositis [Recovered/Resolved with Sequelae]
  - Autoimmune myositis [Recovered/Resolved with Sequelae]

NARRATIVE: CASE EVENT DATE: 20220901
